FAERS Safety Report 6829227-6 (Version None)
Quarter: 2010Q2

REPORT INFORMATION
  Report Type: 
  Country: None (occurrence: None)
  Receive Date: 20100621
  Receipt Date: 20100611
  Transmission Date: 20101027
  Serious: Yes (Life-Threatening)
  Sender: FDA-Public Use
  Company Number: PT-IGSA-IG682

PATIENT
  Age: 72 Year
  Sex: Female
  Weight: 77 kg

DRUGS (15)
  1. FLEBOGAMMADIF 5%, HUMAN NORMAL IMMUNOGLOBULIN [Suspect]
     Indication: HYPOGAMMAGLOBULINAEMIA
     Dosage: 15 G TOTAL IV
     Route: 042
     Dates: start: 20100508
  2. FLEBOGAMMADIF 5%, HUMAN NORMAL IMMUNOGLOBULIN LOTS USED: IBGJ8VTVV1 AN [Suspect]
  3. NEUPOGEN [Concomitant]
  4. OMEPRAZOLE [Concomitant]
  5. CALCIUM CARBONATE [Concomitant]
  6. ACYCLOVIR [Concomitant]
  7. MAGNESIUM DL ASPARTATE TETRAHYDRATE [Concomitant]
  8. LEVOTHYROXINE SODIUM [Concomitant]
  9. RITUXIMAB [Concomitant]
  10. CYCLOPHOSPHAMIDE [Concomitant]
  11. VINCRISTINE SULFATE [Concomitant]
  12. PIPERACILLIN SODIUM [Concomitant]
  13. TAZOBACTAM SODIUM [Concomitant]
  14. MIRTAZAPINE [Concomitant]
  15. AMIKACIN [Concomitant]

REACTIONS (3)
  - ANAPHYLACTIC SHOCK [None]
  - CARDIAC ENZYMES INCREASED [None]
  - SUBENDOCARDIAL ISCHAEMIA [None]
